FAERS Safety Report 5908887-8 (Version None)
Quarter: 2008Q4

REPORT INFORMATION
  Report Type: 
  Country: None (occurrence: None)
  Receive Date: 20081001
  Receipt Date: 20080923
  Transmission Date: 20090506
  Serious: Yes (Other)
  Sender: FDA-Public Use
  Company Number: 2008SP019733

PATIENT
  Sex: Male

DRUGS (1)
  1. AFRIN [Suspect]
     Indication: NASOPHARYNGITIS
     Dosage: NAS
     Route: 045

REACTIONS (2)
  - APPARENT DEATH [None]
  - HEART RATE INCREASED [None]
